FAERS Safety Report 5115267-4 (Version None)
Quarter: 2006Q3

REPORT INFORMATION
  Report Type: 
  Country: None (occurrence: None)
  Receive Date: 20060926
  Receipt Date: 20060919
  Transmission Date: 20061208
  Serious: Yes (Death)
  Sender: FDA-Public Use
  Company Number: CA-GLAXOSMITHKLINE-A0620728A

PATIENT
  Age: 57 Year
  Sex: Female
  Weight: 105.4 kg

DRUGS (1)
  1. FLOLAN [Suspect]

REACTIONS (1)
  - DEATH [None]
